FAERS Safety Report 5418271-1 (Version None)
Quarter: 2007Q3

REPORT INFORMATION
  Report Type: 
  Country: None (occurrence: None)
  Receive Date: 20070817
  Receipt Date: 20070808
  Transmission Date: 20080115
  Serious: Yes (Life-Threatening, Disabling)
  Sender: FDA-Public Use
  Company Number: B0482844A

PATIENT
  Age: 37 Year
  Sex: Male
  Weight: 70 kg

DRUGS (4)
  1. KIVEXA [Suspect]
     Indication: SYSTEMIC ANTIVIRAL TREATMENT
     Dosage: 600MG PER DAY
     Route: 048
     Dates: start: 20070702, end: 20070803
  2. KALETRA [Concomitant]
     Dosage: 2TAB TWICE PER DAY
     Dates: start: 20070702
  3. SULFADIAZINE [Concomitant]
     Dosage: 500MG PER DAY
     Dates: start: 20070709
  4. PIRIMETAMINA [Concomitant]
     Dosage: 50MG PER DAY
     Dates: start: 20070709

REACTIONS (10)
  - COUGH [None]
  - DYSPNOEA [None]
  - HYPERSENSITIVITY [None]
  - IMMUNE SYSTEM DISORDER [None]
  - INTERSTITIAL LUNG DISEASE [None]
  - OEDEMA PERIPHERAL [None]
  - PYREXIA [None]
  - RASH [None]
  - RASH MACULO-PAPULAR [None]
  - VOMITING [None]
